FAERS Safety Report 26025965 (Version 2)
Quarter: 2025Q4

REPORT INFORMATION
  Report Type: Spontaneous
  Country: US (occurrence: US)
  Receive Date: 20251111
  Receipt Date: 20251205
  Transmission Date: 20260118
  Serious: No
  Sender: LEO PHARM
  Company Number: US-LEO Pharma-384079

PATIENT
  Age: 62 Year
  Sex: Male

DRUGS (4)
  1. ADBRY [Suspect]
     Active Substance: TRALOKINUMAB-LDRM
     Indication: Eczema
     Dosage: 600 MG ON DAY 1
     Route: 058
  2. ADBRY [Suspect]
     Active Substance: TRALOKINUMAB-LDRM
     Indication: Eczema
     Dosage: 600 MG ON DAY 1
     Route: 058
  3. ADBRY [Suspect]
     Active Substance: TRALOKINUMAB-LDRM
     Indication: Eczema
     Dosage: 600 MG ON DAY 1
     Route: 058
     Dates: start: 20251103
  4. ADBRY [Suspect]
     Active Substance: TRALOKINUMAB-LDRM
     Indication: Eczema
     Dosage: 600 MG ON DAY 1
     Route: 058
     Dates: start: 20251103

REACTIONS (3)
  - Pain [Unknown]
  - Eczema [Unknown]
  - Injection site pruritus [Not Recovered/Not Resolved]

NARRATIVE: CASE EVENT DATE: 20251103
